FAERS Safety Report 11181685 (Version 6)
Quarter: 2016Q3

REPORT INFORMATION
  Report Type: Spontaneous
  Country: US (occurrence: US)
  Receive Date: 20150611
  Receipt Date: 20160802
  Transmission Date: 20161109
  Serious: Yes (Hospitalization, Disabling, Other)
  Sender: FDA-Public Use
  Company Number: US-009507513-1506USA004810

PATIENT
  Sex: Female

DRUGS (6)
  1. ALENDRONATE SODIUM. [Suspect]
     Active Substance: ALENDRONATE SODIUM
     Indication: OSTEOPOROSIS
     Dosage: 70 MG, QW
     Route: 048
     Dates: start: 20080305, end: 2011
  2. CYANOCOBALAMIN. [Concomitant]
     Active Substance: CYANOCOBALAMIN
     Dosage: 500 MG, QD
     Route: 065
     Dates: start: 2006
  3. FOSAMAX [Suspect]
     Active Substance: ALENDRONATE SODIUM
     Indication: OSTEOPOROSIS PROPHYLAXIS
     Dosage: 70 MG, QW
     Route: 048
     Dates: start: 1999, end: 200803
  4. VITAMINS (UNSPECIFIED) [Concomitant]
     Active Substance: VITAMINS
     Dosage: UNK, QD
     Route: 065
  5. FOSAMAX [Suspect]
     Active Substance: ALENDRONATE SODIUM
     Indication: OSTEOPOROSIS
  6. CALCIUM (UNSPECIFIED) [Concomitant]
     Active Substance: CALCIUM
     Dosage: 1000 MG, QD
     Route: 065

REACTIONS (22)
  - Irritable bowel syndrome [Unknown]
  - Pubis fracture [Recovering/Resolving]
  - Fall [Unknown]
  - Low turnover osteopathy [Not Recovered/Not Resolved]
  - Immune thrombocytopenic purpura [Unknown]
  - Hypertension [Unknown]
  - Femur fracture [Recovered/Resolved]
  - Hypothyroidism [Unknown]
  - Thrombocytopenia [Unknown]
  - Tonsillectomy [Unknown]
  - Stress fracture [Not Recovered/Not Resolved]
  - Renal failure [Unknown]
  - Colitis [Unknown]
  - Femur fracture [Not Recovered/Not Resolved]
  - Haemoglobin decreased [Unknown]
  - Dementia [Unknown]
  - Osteoporosis [Not Recovered/Not Resolved]
  - Atrial fibrillation [Unknown]
  - Cataract operation [Unknown]
  - Dysphagia [Unknown]
  - Ligament sprain [Unknown]
  - Limb asymmetry [Unknown]

NARRATIVE: CASE EVENT DATE: 2006
